FAERS Safety Report 8014592-7 (Version None)
Quarter: 2011Q4

REPORT INFORMATION
  Report Type: 
  Country: None (occurrence: None)
  Receive Date: 20111223
  Receipt Date: 20111212
  Transmission Date: 20120403
  Serious: Yes (Hospitalization)
  Sender: FDA-Public Use
  Company Number: 11-806

PATIENT
  Age: 74 Year
  Sex: Female

DRUGS (3)
  1. IBUPROFEN [Suspect]
     Indication: PRODUCT USED FOR UNKNOWN INDICATION
  2. ALENDRONIC ACID [Suspect]
     Indication: PRODUCT USED FOR UNKNOWN INDICATION
     Dosage: 70MG- ONCE ORAL
     Route: 048
  3. ACETAMINOPHEN AND CODEINE PHOSPHATE [Concomitant]

REACTIONS (6)
  - DIZZINESS [None]
  - GASTROINTESTINAL HAEMORRHAGE [None]
  - FATIGUE [None]
  - MEAN CELL VOLUME DECREASED [None]
  - DYSPNOEA [None]
  - HAEMOGLOBIN DECREASED [None]
